FAERS Safety Report 5097302-5 (Version None)
Quarter: 2006Q3

REPORT INFORMATION
  Report Type: 
  Country: None (occurrence: None)
  Receive Date: 20060901
  Receipt Date: 20060822
  Transmission Date: 20061208
  Serious: No
  Sender: FDA-Public Use
  Company Number: 06H-013-0309698-00

PATIENT
  Age: 9 Year
  Sex: Male

DRUGS (13)
  1. PENTOTHAL [Suspect]
     Indication: STATUS EPILEPTICUS
     Dosage: UP TO 1 MG/KG/HR, INFUSION
  2. DIAZEPAM [Concomitant]
  3. PHENYTOIN [Concomitant]
  4. PHENOBARBITAL [Concomitant]
  5. VALPROIC ACID [Concomitant]
  6. CLONAZEPAM [Concomitant]
  7. CHLORMETHIAZOLE (CLOMETHIAZOLE) [Concomitant]
  8. METHYLPREDNISOLONE [Concomitant]
  9. VIGABATRIN [Concomitant]
  10. TOPIRAMATE [Concomitant]
  11. LIDOCAINE [Concomitant]
  12. KETAMINE HCL [Concomitant]
  13. ISOFLURANE [Concomitant]

REACTIONS (3)
  - CEREBRAL HAEMORRHAGE [None]
  - CORTICAL LAMINAR NECROSIS [None]
  - HAEMODYNAMIC INSTABILITY [None]
